FAERS Safety Report 17323968 (Version 1)
Quarter: 2020Q1

REPORT INFORMATION
  Report Type: Spontaneous
  Country: US (occurrence: US)
  Receive Date: 20200127
  Receipt Date: 20200127
  Transmission Date: 20200409
  Serious: No
  Sender: FDA-Public Use
  Company Number: US-BIOGEN-2020BI00831674

PATIENT
  Sex: Female

DRUGS (2)
  1. TECFIDERA [Suspect]
     Active Substance: DIMETHYL FUMARATE
     Dosage: THEN 1 CAPSULE (240MG) TWICE A DAY FOR 23 DAYS
     Route: 048
     Dates: start: 201912
  2. TECFIDERA [Suspect]
     Active Substance: DIMETHYL FUMARATE
     Indication: MULTIPLE SCLEROSIS
     Dosage: TAKE 1 CAPSULE (120MG) BY MOUTH TWICE A DAY FOR 7 DAYS
     Route: 048

REACTIONS (1)
  - Dizziness [Recovered/Resolved]
